FAERS Safety Report 13817180 (Version 1)
Quarter: 2017Q3

REPORT INFORMATION
  Report Type: Report from Study
  Country: AR (occurrence: AR)
  Receive Date: 20170731
  Receipt Date: 20170731
  Transmission Date: 20171127
  Serious: Yes (Hospitalization)
  Sender: FDA-Public Use
  Company Number: PHHY2017AR110414

PATIENT
  Sex: Male

DRUGS (1)
  1. COSENTYX [Suspect]
     Active Substance: SECUKINUMAB
     Indication: PSORIASIS
     Dosage: 300 MG, QMO
     Route: 065
     Dates: start: 20170412

REACTIONS (3)
  - Erythema [Not Recovered/Not Resolved]
  - Psoriasis [Not Recovered/Not Resolved]
  - Mental disorder [Unknown]
